FAERS Safety Report 8024090-2 (Version None)
Quarter: 2012Q1

REPORT INFORMATION
  Report Type: 
  Country: None (occurrence: None)
  Receive Date: 20120105
  Receipt Date: 20111228
  Transmission Date: 20120608
  Serious: Yes (Hospitalization)
  Sender: FDA-Public Use
  Company Number: AT-SANOFI-AVENTIS-2012SA000108

PATIENT
  Age: 63 Year
  Sex: Male
  Weight: 61.5 kg

DRUGS (16)
  1. BEVACIZUMAB [Suspect]
     Indication: METASTATIC GASTRIC CANCER
     Route: 042
     Dates: start: 20110906, end: 20111123
  2. DURAGESIC-100 [Concomitant]
     Dates: start: 20111126
  3. LACTULOSE [Concomitant]
     Dosage: DOSE: 1 SPOON
     Dates: start: 20111003
  4. PANTOPRAZOLE [Concomitant]
     Dates: start: 20111116
  5. SIMETICONE [Concomitant]
     Dates: start: 20111117
  6. MOTILIUM [Concomitant]
     Dates: start: 20111202
  7. MYCOSTATIN [Concomitant]
     Route: 048
     Dates: start: 20111003
  8. PARKEMED [Concomitant]
     Dates: start: 20111202
  9. MACROGOL [Concomitant]
     Dates: start: 20110913
  10. NAVOBAN [Concomitant]
     Dates: start: 20111202
  11. SUCRALAN [Concomitant]
     Dosage: DOSE: 1G/ML
     Dates: start: 20111031
  12. OXALIPLATIN [Suspect]
     Indication: METASTATIC GASTRIC CANCER
     Dosage: LAST DOSE PRIOR TO EVENT ON 23 NOV 2011
     Route: 042
     Dates: start: 20110906, end: 20111123
  13. METOCLOPRAMIDE HYDROCHLORIDE [Concomitant]
     Dosage: DOSE: 1 AMPULE.
     Dates: start: 20111204
  14. IRINOTECAN HCL [Suspect]
     Indication: METASTATIC GASTRIC CANCER
     Route: 042
     Dates: start: 20110906, end: 20111123
  15. DULCOLAX [Concomitant]
     Dates: start: 20110905
  16. REQUIP [Concomitant]
     Dates: start: 20110801

REACTIONS (2)
  - CANDIDIASIS [None]
  - OESOPHAGITIS [None]
